FAERS Safety Report 25969533 (Version 1)
Quarter: 2025Q4

REPORT INFORMATION
  Report Type: Spontaneous
  Country: EU (occurrence: EU)
  Receive Date: 20251028
  Receipt Date: 20251028
  Transmission Date: 20260118
  Serious: Yes (Death, Other)
  Sender: JOHNSON AND JOHNSON
  Company Number: None

PATIENT
  Age: 63 Year
  Sex: Female

DRUGS (7)
  1. SPRAVATO [Suspect]
     Active Substance: ESKETAMINE
     Indication: Major depression
     Route: 045
     Dates: start: 20250805, end: 20250915
  2. CLORAZEPATE DIPOTASSIUM [Concomitant]
     Active Substance: CLORAZEPATE DIPOTASSIUM
     Indication: Product used for unknown indication
     Dosage: 15 MG 3X/J
  3. FLUPENTIXOL 1mg Tablet [Concomitant]
     Indication: Product used for unknown indication
  4. LORAZEPAM [Concomitant]
     Active Substance: LORAZEPAM
     Indication: Product used for unknown indication
     Dosage: AS NECESSARY
  5. OLANZAPINE [Concomitant]
     Active Substance: OLANZAPINE
     Indication: Product used for unknown indication
     Dosage: AS NECESSARY
  6. PAROXETINE [Concomitant]
     Active Substance: PAROXETINE
     Indication: Product used for unknown indication
     Dosage: EVENING
  7. PROTHIPENDYL HYDROCHLORIDE 80 mg [Concomitant]
     Indication: Product used for unknown indication
     Dosage: BEDTIME

REACTIONS (1)
  - Suicide attempt [Fatal]

NARRATIVE: CASE EVENT DATE: 20250920
